FAERS Safety Report 12291306 (Version 1)
Quarter: 2016Q2

REPORT INFORMATION
  Report Type: Spontaneous
  Country: US (occurrence: US)
  Receive Date: 20160421
  Receipt Date: 20160421
  Transmission Date: 20160815
  Serious: No
  Sender: FDA-Public Use
  Company Number: US-AMGEN-USASP2016013664

PATIENT
  Age: 74 Year
  Sex: Male

DRUGS (2)
  1. REPATHA [Suspect]
     Active Substance: EVOLOCUMAB
     Indication: LOW DENSITY LIPOPROTEIN
  2. REPATHA [Suspect]
     Active Substance: EVOLOCUMAB
     Indication: CORONARY ARTERY DISEASE
     Dosage: 140 MG, Q2WK
     Route: 065
     Dates: start: 20160108, end: 20160122

REACTIONS (6)
  - Fatigue [Unknown]
  - Cough [Unknown]
  - Pain in extremity [Unknown]
  - Throat irritation [Unknown]
  - Dysstasia [Unknown]
  - Rhinorrhoea [Unknown]

NARRATIVE: CASE EVENT DATE: 2016
